FAERS Safety Report 4941220-7 (Version None)
Quarter: 2006Q1

REPORT INFORMATION
  Report Type: 
  Country: None (occurrence: None)
  Receive Date: 20060310
  Receipt Date: 20060310
  Transmission Date: 20060701
  Serious: Yes (Hospitalization, Other)
  Sender: FDA-Public Use
  Company Number: None

PATIENT
  Sex: Male
  Weight: 101.36 kg

DRUGS (6)
  1. FLUOROURACIL [Suspect]
     Indication: COLORECTAL CANCER
     Dosage: 6188 MG
     Dates: start: 20060228
  2. BEVACIZUMAB [Suspect]
     Dosage: 507 KG
     Dates: start: 20060228
  3. LEUCOVORIN CALCIUM [Suspect]
     Dosage: 884 MG
     Dates: start: 20060228
  4. ELOXATIN [Suspect]
     Dosage: 188 MG
     Dates: start: 20060228
  5. OXYCODONE [Concomitant]
  6. OYXCONTIN [Concomitant]

REACTIONS (4)
  - CONSTIPATION [None]
  - INFUSION RELATED REACTION [None]
  - NAUSEA [None]
  - VOMITING [None]
